FAERS Safety Report 6234603-9 (Version None)
Quarter: 2009Q2

REPORT INFORMATION
  Report Type: 
  Country: None (occurrence: None)
  Receive Date: 20090615
  Receipt Date: 20090602
  Transmission Date: 20091009
  Serious: Yes (Disabling)
  Sender: FDA-Public Use
  Company Number: FI-WYE-G03784109

PATIENT
  Age: 62 Year
  Sex: Male

DRUGS (17)
  1. RELISTOR [Suspect]
     Indication: CONSTIPATION
     Dosage: 12 MG 1X PER 1 TOT SC
     Route: 058
     Dates: start: 20090525, end: 20090525
  2. CITALOPRAM HYDROBROMIDE [Concomitant]
  3. NEORAL [Concomitant]
  4. LEVOTHYROXINE SODIUM [Concomitant]
  5. EXPROS (TAMSULOSIN HYDROCHLORIDE) [Concomitant]
  6. MEDROL [Concomitant]
  7. FURESIS (FUROSEMIDE) [Concomitant]
  8. CELLCEPT [Concomitant]
  9. ZOFRAN [Concomitant]
  10. CALCIHEW-D3 (CALCIUM CARBONATE/COLECALIFEROL) [Concomitant]
  11. DURAGESIC-100 [Concomitant]
  12. PRIMPERAN TAB [Concomitant]
  13. PROTAPHANE MC (INSULIN INJECTION, ISOPHANE) [Concomitant]
  14. ACTRAPID PENFILL (INSULIN HUMAN) [Concomitant]
  15. PARAMAX (METOCLOPRAMIDE HYDROCHLORIDE/PARACETAMOL) [Concomitant]
  16. IMOVANE (ZOPICLONE) [Concomitant]
  17. LACTULOSE [Concomitant]

REACTIONS (3)
  - GENITAL PAIN [None]
  - PENILE OEDEMA [None]
  - TESTICULAR OEDEMA [None]
